FAERS Safety Report 19805460 (Version 3)
Quarter: 2021Q4

REPORT INFORMATION
  Report Type: Spontaneous
  Country: US (occurrence: US)
  Receive Date: 20210908
  Receipt Date: 20211019
  Transmission Date: 20220303
  Serious: No
  Sender: FDA-Public Use
  Company Number: US-SANOFI-00753827

PATIENT
  Age: 66 Year
  Sex: Female

DRUGS (2)
  1. ENOXAPARIN SODIUM [Suspect]
     Active Substance: ENOXAPARIN SODIUM
     Indication: Pulmonary embolism
     Dosage: DRUG STRUCTURE DOSAGE: .74 MG DRUG INTERVAL DOSAGE : TWICE DAILY
     Route: 065
     Dates: start: 20210502
  2. ELIQUIS [Concomitant]
     Active Substance: APIXABAN
     Indication: Ovarian cancer
     Dosage: UNK

REACTIONS (5)
  - Platelet count decreased [Unknown]
  - Injection site haemorrhage [Unknown]
  - Skin haemorrhage [Unknown]
  - Injection site bruising [Unknown]
  - Product administered at inappropriate site [Unknown]
